FAERS Safety Report 5188471-7 (Version None)
Quarter: 2006Q4

REPORT INFORMATION
  Report Type: 
  Country: None (occurrence: None)
  Receive Date: 20061214
  Receipt Date: 20061204
  Transmission Date: 20070319
  Serious: Yes (Other)
  Sender: FDA-Public Use
  Company Number: 2006150360

PATIENT
  Age: 57 Year
  Sex: Female
  Weight: 68.0396 kg

DRUGS (11)
  1. SERTRALINE [Suspect]
     Indication: CRYING
     Dosage: 50 MG (50 MG, 1 IN 1 D), ORAL
     Route: 048
     Dates: start: 20061020, end: 20061031
  2. SERTRALINE [Suspect]
     Indication: INFECTIOUS MONONUCLEOSIS
     Dosage: 50 MG (50 MG, 1 IN 1 D), ORAL
     Route: 048
     Dates: start: 20061020, end: 20061031
  3. SERTRALINE [Suspect]
     Indication: INSOMNIA
     Dosage: 50 MG (50 MG, 1 IN 1 D), ORAL
     Route: 048
     Dates: start: 20061020, end: 20061031
  4. SERTRALINE [Suspect]
     Indication: MAJOR DEPRESSION
     Dosage: 50 MG (50 MG, 1 IN 1 D), ORAL
     Route: 048
     Dates: start: 20061020, end: 20061031
  5. SERTRALINE [Suspect]
     Indication: PERICARDITIS
     Dosage: 50 MG (50 MG, 1 IN 1 D), ORAL
     Route: 048
     Dates: start: 20061020, end: 20061031
  6. ZOLOFT [Suspect]
     Indication: CRYING
     Dosage: 50 MG (50 MG, 1 IN 1 D), ORAL; 6-7 YRS AGO
     Route: 048
  7. ZOLOFT [Suspect]
     Indication: INFECTIOUS MONONUCLEOSIS
     Dosage: 50 MG (50 MG, 1 IN 1 D), ORAL; 6-7 YRS AGO
     Route: 048
  8. ZOLOFT [Suspect]
     Indication: INSOMNIA
     Dosage: 50 MG (50 MG, 1 IN 1 D), ORAL; 6-7 YRS AGO
     Route: 048
  9. ZOLOFT [Suspect]
     Indication: MAJOR DEPRESSION
     Dosage: 50 MG (50 MG, 1 IN 1 D), ORAL; 6-7 YRS AGO
     Route: 048
  10. ZOLOFT [Suspect]
     Indication: PERICARDITIS
     Dosage: 50 MG (50 MG, 1 IN 1 D), ORAL; 6-7 YRS AGO
     Route: 048
  11. NEXIUM [Concomitant]

REACTIONS (1)
  - DRUG INEFFECTIVE [None]
